FAERS Safety Report 9940527 (Version 1)
Quarter: 2014Q1

REPORT INFORMATION
  Report Type: Spontaneous
  Country: RS (occurrence: RS)
  Receive Date: 20140303
  Receipt Date: 20140303
  Transmission Date: 20141002
  Serious: Yes (Other)
  Sender: FDA-Public Use
  Company Number: RS-MYLANLABS-2014S1003983

PATIENT
  Age: 39 Year
  Sex: Female

DRUGS (5)
  1. ETOPOSIDE [Suspect]
     Indication: RECURRENT CANCER
     Dosage: 200MG IN 500ML OF 0.9% SODIUM CHLORIDE OVER 60MIN
     Route: 050
  2. METHOTREXATE [Concomitant]
     Indication: RECURRENT CANCER
     Route: 065
  3. DACTINOMYCIN [Concomitant]
     Indication: RECURRENT CANCER
     Route: 065
  4. CYCLOPHOSPHAMIDE [Concomitant]
     Indication: RECURRENT CANCER
     Route: 065
  5. VINCRISTINE [Concomitant]
     Indication: RECURRENT CANCER
     Route: 065

REACTIONS (10)
  - Drug hypersensitivity [Recovered/Resolved]
  - Feeling hot [Recovered/Resolved]
  - Throat tightness [Recovered/Resolved]
  - Dyspnoea [Recovered/Resolved]
  - Palpitations [Recovered/Resolved]
  - Hypotension [Recovered/Resolved]
  - Tachycardia [Recovered/Resolved]
  - Hypoxia [Recovered/Resolved]
  - Bronchospasm [Recovered/Resolved]
  - Chest discomfort [Recovered/Resolved]
